FAERS Safety Report 5761366-3 (Version None)
Quarter: 2008Q2

REPORT INFORMATION
  Report Type: 
  Country: None (occurrence: None)
  Receive Date: 20080606
  Receipt Date: 20080603
  Transmission Date: 20081010
  Serious: Yes (Hospitalization)
  Sender: FDA-Public Use
  Company Number: FR-BRISTOL-MYERS SQUIBB COMPANY-14216519

PATIENT
  Age: 48 Year
  Sex: Female
  Weight: 55 kg

DRUGS (7)
  1. REYATAZ [Suspect]
     Dates: start: 20050315
  2. KIVEXA [Suspect]
  3. NORVIR [Suspect]
     Dates: start: 20050415
  4. LEVOTHYROXINE SODIUM [Concomitant]
  5. ELISOR [Concomitant]
  6. TAREG [Concomitant]
  7. SECTRAL [Concomitant]

REACTIONS (1)
  - MYOCARDIAL INFARCTION [None]
